FAERS Safety Report 16040288 (Version 2)
Quarter: 2019Q1

REPORT INFORMATION
  Report Type: Spontaneous
  Country: DK (occurrence: DK)
  Receive Date: 20190306
  Receipt Date: 20190322
  Transmission Date: 20190418
  Serious: Yes (Other)
  Sender: FDA-Public Use
  Company Number: DK-PFIZER INC-2019091089

PATIENT
  Age: 33 Year
  Sex: Female

DRUGS (4)
  1. DACARBAZINE. [Concomitant]
     Active Substance: DACARBAZINE
     Indication: HODGKIN^S DISEASE
     Dosage: 1 DF, UNK EVERY SECOND WEEK, (8 SERIES GIVEN)
     Route: 042
     Dates: start: 2014
  2. ADRIAMYCIN [Suspect]
     Active Substance: DOXORUBICIN HYDROCHLORIDE
     Indication: HODGKIN^S DISEASE
     Dosage: 1 DF, UNK EVERY SECOND WEEK, (8 SERIES GIVEN)
     Route: 042
     Dates: start: 2014
  3. BLEOMYCIN [Concomitant]
     Active Substance: BLEOMYCIN SULFATE
     Indication: HODGKIN^S DISEASE
     Dosage: 1 DF, UNK EVERY SECOND WEEK, (8 SERIES GIVEN)
     Route: 042
     Dates: start: 2014
  4. VINBLASTINE [Concomitant]
     Active Substance: VINBLASTINE
     Indication: HODGKIN^S DISEASE
     Dosage: 1 DF, UNK EVERY SECOND WEEK (8 SERIES GIVEN)
     Route: 042
     Dates: start: 2014

REACTIONS (8)
  - Left ventricular dilatation [Not Recovered/Not Resolved]
  - Heart valve incompetence [Not Recovered/Not Resolved]
  - Dyspnoea [Unknown]
  - Cough [Unknown]
  - Ejection fraction decreased [Not Recovered/Not Resolved]
  - Palpitations [Not Recovered/Not Resolved]
  - Cardiac failure chronic [Not Recovered/Not Resolved]
  - Dizziness [Not Recovered/Not Resolved]

NARRATIVE: CASE EVENT DATE: 2016
